FAERS Safety Report 17244495 (Version 3)
Quarter: 2020Q1

REPORT INFORMATION
  Report Type: Spontaneous
  Country: US (occurrence: US)
  Receive Date: 20200107
  Receipt Date: 20200325
  Transmission Date: 20200409
  Serious: Yes (Hospitalization, Other)
  Sender: FDA-Public Use
  Company Number: US-GILEAD-2020-0445101

PATIENT
  Age: 55 Year
  Sex: Male
  Weight: 59.86 kg

DRUGS (23)
  1. DESCOVY [Concomitant]
     Active Substance: EMTRICITABINE\TENOFOVIR ALAFENAMIDE FUMARATE
  2. PANTOPRAZOLE [Concomitant]
     Active Substance: PANTOPRAZOLE
  3. ABACAVIR. [Concomitant]
     Active Substance: ABACAVIR
  4. ETHAMBUTOL [Concomitant]
     Active Substance: ETHAMBUTOL HYDROCHLORIDE
  5. RIFABUTIN. [Concomitant]
     Active Substance: RIFABUTIN
  6. FLUCONAZOLE. [Concomitant]
     Active Substance: FLUCONAZOLE
  7. TIVICAY [Concomitant]
     Active Substance: DOLUTEGRAVIR SODIUM
  8. DIFLUCAN [Concomitant]
     Active Substance: FLUCONAZOLE
  9. AZITHROMYCIN ANHYDROUS. [Concomitant]
     Active Substance: AZITHROMYCIN ANHYDROUS
  10. AMIKACIN. [Concomitant]
     Active Substance: AMIKACIN
  11. CLOTRIMAZOLE. [Concomitant]
     Active Substance: CLOTRIMAZOLE
  12. ATOVAQUONE. [Concomitant]
     Active Substance: ATOVAQUONE
  13. ATRIPLA [Suspect]
     Active Substance: EFAVIRENZ\EMTRICITABINE\TENOFOVIR DISOPROXIL FUMARATE
     Indication: HIV INFECTION
     Dosage: 1 DOSAGE FORM, QD
     Route: 048
     Dates: start: 201409, end: 20190921
  14. TRUVADA [Suspect]
     Active Substance: EMTRICITABINE\TENOFOVIR DISOPROXIL FUMARATE
     Indication: HIV INFECTION
     Dosage: UNK
     Route: 048
     Dates: start: 20141018, end: 201410
  15. LEVOFLOXACIN. [Concomitant]
     Active Substance: LEVOFLOXACIN
  16. RIFAMPIN. [Concomitant]
     Active Substance: RIFAMPIN
  17. ONDANSETRON [Concomitant]
     Active Substance: ONDANSETRON
  18. TRUVADA [Suspect]
     Active Substance: EMTRICITABINE\TENOFOVIR DISOPROXIL FUMARATE
     Dosage: UNK
     Route: 048
     Dates: start: 20190905, end: 201909
  19. NYSTATIN. [Concomitant]
     Active Substance: NYSTATIN
  20. DOLUTEGRAVIR [Concomitant]
     Active Substance: DOLUTEGRAVIR
  21. TRUVADA [Suspect]
     Active Substance: EMTRICITABINE\TENOFOVIR DISOPROXIL FUMARATE
     Dosage: UNK
     Route: 048
     Dates: start: 20180901, end: 20180904
  22. TRUVADA [Suspect]
     Active Substance: EMTRICITABINE\TENOFOVIR DISOPROXIL FUMARATE
     Dosage: UNK
     Route: 048
     Dates: start: 20181017, end: 201810
  23. BACTRIM [Concomitant]
     Active Substance: SULFAMETHOXAZOLE\TRIMETHOPRIM

REACTIONS (10)
  - Bone loss [Unknown]
  - Emotional distress [Unknown]
  - Anxiety [Unknown]
  - Tooth fracture [Unknown]
  - Tooth loss [Unknown]
  - Economic problem [Unknown]
  - Pain [Unknown]
  - Chronic kidney disease [Recovered/Resolved]
  - Anhedonia [Unknown]
  - Acute kidney injury [Not Recovered/Not Resolved]

NARRATIVE: CASE EVENT DATE: 20190904
